FAERS Safety Report 14772328 (Version 1)
Quarter: 2018Q2

REPORT INFORMATION
  Report Type: Spontaneous
  Country: US (occurrence: US)
  Receive Date: 20180418
  Receipt Date: 20180418
  Transmission Date: 20180711
  Serious: No
  Sender: FDA-Public Use
  Company Number: US-009507513-1804USA003928

PATIENT
  Sex: Female

DRUGS (6)
  1. VITAMIN D [Concomitant]
     Active Substance: CHOLECALCIFEROL
  2. JANUVIA [Suspect]
     Active Substance: SITAGLIPTIN PHOSPHATE
     Indication: DIABETES MELLITUS
     Dosage: 1 TABLET/ONCE A DAY
     Route: 048
     Dates: start: 201604, end: 201711
  3. METFORMIN [Suspect]
     Active Substance: METFORMIN HYDROCHLORIDE
     Indication: DIABETES MELLITUS
     Dosage: UNK
     Dates: end: 201711
  4. IRON (UNSPECIFIED) [Concomitant]
     Active Substance: IRON
  5. ADVAIR HFA [Concomitant]
     Active Substance: FLUTICASONE PROPIONATE\SALMETEROL XINAFOATE
  6. ASPIRIN. [Concomitant]
     Active Substance: ASPIRIN
     Dosage: DAILY

REACTIONS (1)
  - Anal incontinence [Recovered/Resolved]

NARRATIVE: CASE EVENT DATE: 2017
